FAERS Safety Report 10149026 (Version 1)
Quarter: 2014Q2

REPORT INFORMATION
  Report Type: Spontaneous
  Country: US (occurrence: None)
  Receive Date: 20140430
  Receipt Date: 20140430
  Transmission Date: 20141212
  Serious: No
  Sender: FDA-Public Use
  Company Number: None

PATIENT
  Age: 65 Year
  Sex: Female

DRUGS (2)
  1. AFINITOR 10MG NOVARTIS [Suspect]
     Route: 048
     Dates: start: 20130718
  2. AFINITOR 10MG NOVARTIS [Suspect]
     Route: 048
     Dates: start: 20130718

REACTIONS (6)
  - Epistaxis [None]
  - Diabetes mellitus [None]
  - Blood cholesterol increased [None]
  - Cardiac disorder [None]
  - Nasopharyngitis [None]
  - Onychomadesis [None]
